FAERS Safety Report 11139695 (Version 2)
Quarter: 2015Q2

REPORT INFORMATION
  Report Type: Spontaneous
  Country: US (occurrence: None)
  Receive Date: 20150522
  Receipt Date: 20150601
  Transmission Date: 20150821
  Serious: Yes (Hospitalization, Other)
  Sender: FDA-Public Use
  Company Number: ADR-2015-00998

PATIENT
  Age: 21 Year
  Sex: Female

DRUGS (4)
  1. COMPOUNDED BACLOFEN INTRATHECAL [Suspect]
     Active Substance: BACLOFEN
     Indication: PAIN
  2. DILAUDID [Suspect]
     Active Substance: HYDROMORPHONE HYDROCHLORIDE
     Route: 048
  3. KETAMINE [Suspect]
     Active Substance: KETAMINE
     Indication: PAIN
  4. FENTANYL. [Suspect]
     Active Substance: FENTANYL

REACTIONS (1)
  - Exposure during pregnancy [None]
